FAERS Safety Report 8629317 (Version 3)
Quarter: 2013Q1

REPORT INFORMATION
  Report Type: Spontaneous
  Country: US (occurrence: US)
  Receive Date: 20120622
  Receipt Date: 20130328
  Transmission Date: 20140127
  Serious: Yes (Death, Hospitalization)
  Sender: FDA-Public Use
  Company Number: US-PAR PHARMACEUTICAL, INC-2012SCPR004451

PATIENT
  Sex: 0

DRUGS (9)
  1. MEGACE ES [Suspect]
     Indication: DECREASED APPETITE
     Dosage: 625 MG/ 5 ML, ONCE DAILY
     Route: 048
     Dates: start: 20120515, end: 20120606
  2. MEGACE ES [Suspect]
     Indication: CACHEXIA
  3. MEGACE ES [Suspect]
     Indication: WEIGHT DECREASED
  4. TRAMADOL [Suspect]
     Indication: PRODUCT USED FOR UNKNOWN INDICATION
     Dosage: 50 MG, TID
     Route: 065
  5. PRILOSEC [Concomitant]
     Indication: PRODUCT USED FOR UNKNOWN INDICATION
     Dosage: 20 MG, DAILY
     Route: 065
  6. LISINOPRIL [Concomitant]
     Indication: PRODUCT USED FOR UNKNOWN INDICATION
     Dosage: 5 MG, BID
     Route: 065
  7. NIFEREX [Concomitant]
     Indication: PRODUCT USED FOR UNKNOWN INDICATION
     Dosage: 150 MG, BID
     Route: 065
  8. CALCIUM REPLACEMENT [Concomitant]
     Indication: PRODUCT USED FOR UNKNOWN INDICATION
     Dosage: 500/200MG BID
     Route: 065
  9. COLACE [Concomitant]
     Indication: PRODUCT USED FOR UNKNOWN INDICATION
     Dosage: 100 MG, BID
     Route: 065

REACTIONS (4)
  - Endometritis [Fatal]
  - Mental status changes [Fatal]
  - Death [Fatal]
  - Unresponsive to stimuli [Unknown]
